FAERS Safety Report 18322236 (Version 1)
Quarter: 2020Q3

REPORT INFORMATION
  Report Type: Spontaneous
  Country: FR (occurrence: FR)
  Receive Date: 20200929
  Receipt Date: 20200929
  Transmission Date: 20201103
  Serious: Yes (Other)
  Sender: FDA-Public Use
  Company Number: FR-SUN PHARMACEUTICAL INDUSTRIES LTD-2020R1-249077

PATIENT
  Sex: Male
  Weight: 95 kg

DRUGS (4)
  1. LOPINAVIR/RITONAVIR [Suspect]
     Active Substance: LOPINAVIR\RITONAVIR
     Indication: ACUTE RESPIRATORY DISTRESS SYNDROME
     Dosage: 400/100 MG, BID
     Route: 048
  2. DEXAMETHASONE. [Suspect]
     Active Substance: DEXAMETHASONE
     Indication: ACUTE RESPIRATORY DISTRESS SYNDROME
     Dosage: 10 MILLIGRAM
     Route: 042
  3. DEXAMETHASONE. [Suspect]
     Active Substance: DEXAMETHASONE
     Dosage: 5 MILLIGRAM
     Route: 042
  4. HYDROXYCHLOROQUINE [Suspect]
     Active Substance: HYDROXYCHLOROQUINE
     Indication: COVID-19 PROPHYLAXIS
     Dosage: 200 MILLIGRAM, BID
     Route: 065

REACTIONS (2)
  - Drug interaction [Unknown]
  - Drug ineffective for unapproved indication [Unknown]
